FAERS Safety Report 21042747 (Version 1)
Quarter: 2022Q3

REPORT INFORMATION
  Report Type: Spontaneous
  Country: CA (occurrence: CA)
  Receive Date: 20220705
  Receipt Date: 20220705
  Transmission Date: 20221027
  Serious: Yes (Other)
  Sender: FDA-Public Use
  Company Number: CA-LEADINGPHARMA-CA-2022LEALIT00101

PATIENT
  Age: 29 Year
  Sex: Female

DRUGS (3)
  1. LIDOCAINE [Suspect]
     Active Substance: LIDOCAINE
     Indication: Local anaesthesia
     Route: 008
  2. LIDOCAINE [Suspect]
     Active Substance: LIDOCAINE
     Route: 008
  3. EPINEPHRINE [Concomitant]
     Active Substance: EPINEPHRINE
     Indication: Local anaesthesia
     Route: 065

REACTIONS (2)
  - Embolia cutis medicamentosa [Unknown]
  - Maternal exposure during delivery [Unknown]
